FAERS Safety Report 10606190 (Version 2)
Quarter: 2015Q1

REPORT INFORMATION
  Report Type: Report from Study
  Country: DE (occurrence: FR)
  Receive Date: 20141125
  Receipt Date: 20150122
  Transmission Date: 20150720
  Serious: Yes (Death, Other)
  Sender: FDA-Public Use
  Company Number: FR-ACTELION-A-CH2014-108212

PATIENT
  Age: 81 Year
  Sex: Male

DRUGS (7)
  1. REVATIO [Concomitant]
     Active Substance: SILDENAFIL CITRATE
  2. PARIET [Concomitant]
     Active Substance: RABEPRAZOLE SODIUM
  3. VENTAVIS [Suspect]
     Active Substance: ILOPROST
     Indication: PULMONARY HYPERTENSION
     Dosage: 8 DF, QD
     Route: 055
  4. TRACLEER [Concomitant]
     Active Substance: BOSENTAN\BOSENTAN MONOHYDRATE
     Indication: PULMONARY HYPERTENSION
     Route: 048
  5. ALDACTAZINE [Concomitant]
     Active Substance: ALTHIAZIDE\SPIRONOLACTONE
  6. SOLUPRED [Concomitant]
     Active Substance: PREDNISOLONE
  7. IMUREL [Concomitant]
     Active Substance: AZATHIOPRINE SODIUM

REACTIONS (3)
  - Hypoxia [Unknown]
  - Dyspnoea [Unknown]
  - Death [Fatal]

NARRATIVE: CASE EVENT DATE: 20110521
